FAERS Safety Report 18283174 (Version 1)
Quarter: 2020Q3

REPORT INFORMATION
  Report Type: Spontaneous
  Country: US (occurrence: US)
  Receive Date: 20200918
  Receipt Date: 20200918
  Transmission Date: 20201103
  Serious: No
  Sender: FDA-Public Use
  Company Number: US-UNITED THERAPEUTICS-UNT-2020-013851

PATIENT
  Sex: Male
  Weight: 68.93 kg

DRUGS (5)
  1. TYVASO [Suspect]
     Active Substance: TREPROSTINIL
     Dosage: 132 ?G, (5 TIMES A DAY)
     Dates: start: 2020, end: 202008
  2. TYVASO [Suspect]
     Active Substance: TREPROSTINIL
     Dosage: 132 ?G, QID
     Dates: start: 202008
  3. TYVASO [Suspect]
     Active Substance: TREPROSTINIL
     Dosage: 60?120 ?G, QID
  4. TADALAFIL. [Concomitant]
     Active Substance: TADALAFIL
     Indication: PRODUCT USED FOR UNKNOWN INDICATION
     Dosage: UNK
     Route: 065
  5. TYVASO [Suspect]
     Active Substance: TREPROSTINIL
     Indication: PULMONARY ARTERIAL HYPERTENSION
     Dosage: UNK
     Dates: start: 20191028

REACTIONS (3)
  - Oxygen saturation decreased [Unknown]
  - Headache [Unknown]
  - Off label use [Unknown]
